FAERS Safety Report 6344629-2 (Version None)
Quarter: 2009Q3

REPORT INFORMATION
  Report Type: 
  Country: None (occurrence: None)
  Receive Date: 20090903
  Receipt Date: 20090819
  Transmission Date: 20100115
  Serious: Yes (Other)
  Sender: FDA-Public Use
  Company Number: 007330

PATIENT
  Age: 57 Year
  Sex: Male

DRUGS (4)
  1. BUSULFEX [Suspect]
     Indication: STEM CELL TRANSPLANT
     Dosage: 185 MG/M2, INTRAVENOUS; 545 MG, QD, INTRAVENOUS
     Route: 042
     Dates: start: 20090805, end: 20090806
  2. BUSULFEX [Suspect]
     Indication: STEM CELL TRANSPLANT
     Dosage: 185 MG/M2, INTRAVENOUS; 545 MG, QD, INTRAVENOUS
     Route: 042
     Dates: start: 20090807, end: 20090808
  3. FLUDARABINE PHOSPHATE [Concomitant]
  4. DEXAMETHASONE [Concomitant]

REACTIONS (7)
  - AGGRESSION [None]
  - AGITATION [None]
  - DISORIENTATION [None]
  - HALLUCINATION [None]
  - HYPERTENSION [None]
  - RESPIRATORY RATE INCREASED [None]
  - RESTLESSNESS [None]
